FAERS Safety Report 4333832-9 (Version None)
Quarter: 2004Q2

REPORT INFORMATION
  Report Type: 
  Country: None (occurrence: None)
  Receive Date: 20040406
  Receipt Date: 20040406
  Transmission Date: 20050107
  Serious: Yes (Life-Threatening, Hospitalization, Disabling)
  Sender: FDA-Public Use
  Company Number: None

PATIENT
  Age: 36 Year
  Sex: Female
  Weight: 45.3597 kg

DRUGS (6)
  1. PROZAC [Suspect]
  2. PAXIL [Suspect]
  3. ZOLOFT [Suspect]
  4. EFFEXOR [Suspect]
  5. WELLBUTRIN [Suspect]
  6. SERTRALINE [Suspect]

REACTIONS (7)
  - ACCIDENTAL OVERDOSE [None]
  - ANGER [None]
  - ANOREXIA [None]
  - COGNITIVE DISORDER [None]
  - DEPRESSION [None]
  - FIBROMYALGIA [None]
  - SUICIDE ATTEMPT [None]
